FAERS Safety Report 15899221 (Version 1)
Quarter: 2019Q1

REPORT INFORMATION
  Report Type: Spontaneous
  Country: CN (occurrence: CN)
  Receive Date: 20190201
  Receipt Date: 20190201
  Transmission Date: 20190417
  Serious: Yes (Death, Other)
  Sender: FDA-Public Use
  Company Number: CN-ROCHE-2251643

PATIENT

DRUGS (2)
  1. VALGANCICLOVIR. [Suspect]
     Active Substance: VALGANCICLOVIR
     Indication: PROPHYLAXIS
     Dosage: EVERY DAY FOR 30 DAYS
     Route: 065
  2. GANCICLOVIR. [Suspect]
     Active Substance: GANCICLOVIR
     Indication: PROPHYLAXIS
     Dosage: 2 WEEKS TWO MONTHS LATER THE DRUG WAS ADMINISTERED
     Route: 042

REACTIONS (11)
  - Respiratory failure [Fatal]
  - Complications of transplanted kidney [Unknown]
  - Granulocytopenia [Unknown]
  - Renal transplant failure [Unknown]
  - Lung infection [Unknown]
  - Hepatic enzyme increased [Recovered/Resolved]
  - Septic shock [Fatal]
  - Transplant rejection [Unknown]
  - Drug resistance [Unknown]
  - Cytomegalovirus infection [Unknown]
  - Pneumonia [Fatal]
